FAERS Safety Report 23062710 (Version 3)
Quarter: 2024Q3

REPORT INFORMATION
  Report Type: Report from Study
  Country: RO (occurrence: RO)
  Receive Date: 20231013
  Receipt Date: 20240807
  Transmission Date: 20241017
  Serious: Yes (Hospitalization)
  Sender: ROCHE
  Company Number: RO-ROCHE-3434534

PATIENT
  Age: 67 Year
  Sex: Male
  Weight: 85.0 kg

DRUGS (2)
  1. GLOFITAMAB [Suspect]
     Active Substance: GLOFITAMAB
     Indication: Mantle cell lymphoma
     Dosage: DURATION OF TREATMENT ADMINISTRATION 8 HOURS
     Route: 042
     Dates: start: 20230621, end: 20230621
  2. OBINUTUZUMAB [Suspect]
     Active Substance: OBINUTUZUMAB
     Indication: Mantle cell lymphoma
     Dosage: CYCLE 1 DAY 1 AND CYCLE 1 DAY 7
     Route: 042
     Dates: start: 20230613

REACTIONS (1)
  - Cytokine release syndrome [Recovered/Resolved]
